FAERS Safety Report 17657261 (Version 3)
Quarter: 2020Q2

REPORT INFORMATION
  Report Type: Report from Study
  Country: US (occurrence: US)
  Receive Date: 20200410
  Receipt Date: 20200601
  Transmission Date: 20200713
  Serious: Yes (Death)
  Sender: FDA-Public Use
  Company Number: US-JNJFOC-20200403627

PATIENT
  Sex: Male

DRUGS (4)
  1. SPRAVATO [Suspect]
     Active Substance: ESKETAMINE
     Dates: start: 20200121, end: 20200121
  2. SPRAVATO [Suspect]
     Active Substance: ESKETAMINE
     Dates: start: 20200123, end: 20200123
  3. SPRAVATO [Suspect]
     Active Substance: ESKETAMINE
     Dates: start: 20200130, end: 20200130
  4. SPRAVATO [Suspect]
     Active Substance: ESKETAMINE
     Indication: DEPRESSION
     Dates: start: 20200104, end: 20200104

REACTIONS (1)
  - Completed suicide [Fatal]
